FAERS Safety Report 18769879 (Version 1)
Quarter: 2021Q1

REPORT INFORMATION
  Report Type: Spontaneous
  Country: US (occurrence: US)
  Receive Date: 20210121
  Receipt Date: 20210121
  Transmission Date: 20210419
  Serious: No
  Sender: FDA-Public Use
  Company Number: US-PFIZER INC-2021035133

PATIENT
  Sex: Female

DRUGS (4)
  1. GLUCOTROL [Suspect]
     Active Substance: GLIPIZIDE
     Dosage: 5 MG, 2X/DAY
  2. GLUCOTROL [Suspect]
     Active Substance: GLIPIZIDE
     Dosage: TWO TABLETS A DAY
     Dates: start: 2003
  3. GLUCOTROL [Suspect]
     Active Substance: GLIPIZIDE
     Dosage: HALF TABLET
  4. GLUCOTROL [Suspect]
     Active Substance: GLIPIZIDE
     Dosage: 1 TABLET A DAY

REACTIONS (1)
  - Blood glucose decreased [Unknown]
